FAERS Safety Report 8197051-0 (Version None)
Quarter: 2012Q1

REPORT INFORMATION
  Report Type: 
  Country: None (occurrence: None)
  Receive Date: 20120309
  Receipt Date: 20120301
  Transmission Date: 20120608
  Serious: Yes (Other)
  Sender: FDA-Public Use
  Company Number: US-BAYER-2012-021454

PATIENT
  Sex: Female

DRUGS (7)
  1. VITAMIN D [Concomitant]
  2. ZITHROMAX [Suspect]
     Indication: UPPER RESPIRATORY TRACT INFECTION
     Dosage: UNK
     Dates: start: 20120225
  3. PREMARIN [Concomitant]
  4. AVELOX [Suspect]
     Indication: PNEUMONIA
     Dosage: 400 MG, QD
     Dates: start: 20120226, end: 20120229
  5. AVELOX [Suspect]
     Dosage: 0.5 TABLET PER DAY
     Dates: start: 20120301
  6. LEVOTHYROXINE SODIUM [Concomitant]
  7. AVELOX [Suspect]
     Indication: URINARY TRACT INFECTION
     Dosage: 400 MG DAILY
     Route: 048
     Dates: start: 20120223, end: 20120224

REACTIONS (8)
  - DIZZINESS [None]
  - PNEUMONIA [None]
  - ORTHOSTATIC HYPOTENSION [None]
  - CHEST DISCOMFORT [None]
  - FATIGUE [None]
  - FEELING ABNORMAL [None]
  - MUSCULAR WEAKNESS [None]
  - ASTHENIA [None]
